FAERS Safety Report 9862698 (Version 1)
Quarter: 2014Q1

REPORT INFORMATION
  Report Type: Spontaneous
  Country: US (occurrence: US)
  Receive Date: 20140203
  Receipt Date: 20140203
  Transmission Date: 20141002
  Serious: Yes (Death)
  Sender: FDA-Public Use
  Company Number: CHPA2014US001640

PATIENT
  Age: 56 Year
  Sex: Male

DRUGS (10)
  1. DIPHENHYDRAMINE [Suspect]
     Route: 065
  2. DEXTROMETHORPHAN HYDROBROMIDE [Suspect]
     Route: 065
  3. ACETAMINOPHEN W/HYDROCODONE [Suspect]
     Route: 065
  4. OXYCODONE [Suspect]
     Route: 065
  5. FENTANYL [Suspect]
     Route: 065
  6. PENTAZOCINE [Suspect]
     Route: 065
  7. BUTALBITAL [Suspect]
     Route: 065
  8. ZOLPIDEM [Suspect]
     Route: 065
  9. AMITRIPTYLINE [Suspect]
     Route: 065
  10. PROPOXYPHENE [Suspect]
     Route: 065

REACTIONS (1)
  - Intentional drug misuse [Fatal]
